FAERS Safety Report 25758342 (Version 1)
Quarter: 2025Q3

REPORT INFORMATION
  Report Type: Spontaneous
  Country: US (occurrence: US)
  Receive Date: 20250904
  Receipt Date: 20250904
  Transmission Date: 20251021
  Serious: No
  Sender: SANOFI AVENTIS
  Company Number: US-SA-2025SA262401

PATIENT
  Age: 9 Year
  Sex: Male

DRUGS (1)
  1. TZIELD [Suspect]
     Active Substance: TEPLIZUMAB-MZWV

REACTIONS (4)
  - Influenza [Unknown]
  - Pyrexia [Unknown]
  - Feeling of body temperature change [Recovered/Resolved]
  - Pain [Unknown]
